FAERS Safety Report 22196420 (Version 1)
Quarter: 2023Q2

REPORT INFORMATION
  Report Type: Spontaneous
  Country: US (occurrence: None)
  Receive Date: 20230410
  Receipt Date: 20230410
  Transmission Date: 20230722
  Serious: No
  Sender: FDA-Public Use
  Company Number: None

PATIENT
  Age: 58 Year
  Sex: Male

DRUGS (2)
  1. AMBRISENTAN [Suspect]
     Active Substance: AMBRISENTAN
     Indication: Pulmonary hypertension
     Dosage: 10MG QD ORAL
     Route: 048
     Dates: start: 20210714
  2. TADALAFIL [Suspect]
     Active Substance: TADALAFIL

REACTIONS (4)
  - Nausea [None]
  - Dizziness [None]
  - Road traffic accident [None]
  - Alcohol poisoning [None]

NARRATIVE: CASE EVENT DATE: 20230318
